FAERS Safety Report 4516325-5 (Version None)
Quarter: 2004Q4

REPORT INFORMATION
  Report Type: 
  Country: None (occurrence: None)
  Receive Date: 20041202
  Receipt Date: 20040506
  Transmission Date: 20050328
  Serious: No
  Sender: FDA-Public Use
  Company Number: US-GLAXOSMITHKLINE-A0509829A

PATIENT
  Age: 21 Year
  Sex: Male

DRUGS (3)
  1. AUGMENTIN '125' [Suspect]
     Indication: SINUSITIS
     Dosage: 875MG TWICE PER DAY
     Route: 048
  2. FLONASE [Concomitant]
  3. CLARITIN [Concomitant]

REACTIONS (2)
  - ENURESIS [None]
  - HAEMATURIA [None]
